FAERS Safety Report 22197578 (Version 1)
Quarter: 2023Q2

REPORT INFORMATION
  Report Type: Spontaneous
  Country: US (occurrence: None)
  Receive Date: 20230411
  Receipt Date: 20230411
  Transmission Date: 20230722
  Serious: Yes (Other)
  Sender: FDA-Public Use
  Company Number: None

PATIENT
  Age: 50 Year
  Sex: Male
  Weight: 78.75 kg

DRUGS (5)
  1. TAMSULOSIN [Suspect]
     Active Substance: TAMSULOSIN
     Indication: Prostatomegaly
     Dosage: FREQUENCY : DAILY;?
     Route: 048
     Dates: start: 20230410
  2. DULOXETINE [Concomitant]
     Active Substance: DULOXETINE
  3. Manitoba [Concomitant]
  4. HEMP [Concomitant]
     Active Substance: HEMP
  5. FIBER [Concomitant]

REACTIONS (6)
  - Abdominal pain [None]
  - Weight decreased [None]
  - Constipation [None]
  - Proctalgia [None]
  - Haemorrhoids [None]
  - Change of bowel habit [None]

NARRATIVE: CASE EVENT DATE: 20230410
